FAERS Safety Report 16528962 (Version 1)
Quarter: 2019Q3

REPORT INFORMATION
  Report Type: Spontaneous
  Country: CA (occurrence: CA)
  Receive Date: 20190703
  Receipt Date: 20190703
  Transmission Date: 20191004
  Serious: Yes (Hospitalization)
  Sender: FDA-Public Use
  Company Number: CA-ALLERGAN-1927179US

PATIENT
  Sex: Male
  Weight: 86 kg

DRUGS (4)
  1. ASACOL [Suspect]
     Active Substance: MESALAMINE
     Dosage: 3200 MG, QD
  2. PREDNISONE. [Suspect]
     Active Substance: PREDNISONE
     Indication: COLITIS
     Dosage: 50 MG, QD
     Route: 048
  3. ASACOL [Suspect]
     Active Substance: MESALAMINE
     Indication: COLITIS
     Dosage: 6400 MG, QD
  4. SOLU-MEDROL [Suspect]
     Active Substance: METHYLPREDNISOLONE SODIUM SUCCINATE
     Indication: COLITIS
     Dosage: 60 MG
     Route: 042

REACTIONS (2)
  - Drug ineffective [Unknown]
  - Large intestinal ulcer [Recovering/Resolving]
